FAERS Safety Report 4796863-0 (Version None)
Quarter: 2005Q4

REPORT INFORMATION
  Report Type: 
  Country: None (occurrence: None)
  Receive Date: 20051011
  Receipt Date: 20051011
  Transmission Date: 20060501
  Serious: Yes (Hospitalization)
  Sender: FDA-Public Use
  Company Number: None

PATIENT
  Age: 87 Year
  Sex: Male
  Weight: 70 kg

DRUGS (9)
  1. LISINOPRIL [Suspect]
     Indication: HYPERTENSION
     Dosage: 40 MG   DAILY  PO
     Route: 048
     Dates: start: 20040801, end: 20050811
  2. OLANZAPINE [Suspect]
     Indication: DEMENTIA
     Dosage: 5 MG   AT BEDTIME   PO
     Route: 048
     Dates: start: 20050728, end: 20050811
  3. MINOXIDIL [Concomitant]
  4. LASIX [Concomitant]
  5. ECOTRIN [Concomitant]
  6. LIPITOR [Concomitant]
  7. SULAR [Concomitant]
  8. PROCRIT [Concomitant]
  9. CALCIUM CARBONATE [Concomitant]

REACTIONS (4)
  - ANGIONEUROTIC OEDEMA [None]
  - DYSPHAGIA [None]
  - TONGUE BITING [None]
  - TONGUE OEDEMA [None]
